FAERS Safety Report 20600107 (Version 1)
Quarter: 2022Q1

REPORT INFORMATION
  Report Type: Report from Study
  Country: CA (occurrence: CA)
  Receive Date: 20220316
  Receipt Date: 20220316
  Transmission Date: 20220423
  Serious: Yes (Other)
  Sender: FDA-Public Use
  Company Number: CA-UCBSA-2021054683

PATIENT
  Sex: Female

DRUGS (3)
  1. CERTOLIZUMAB PEGOL [Suspect]
     Active Substance: CERTOLIZUMAB PEGOL
     Indication: Hidradenitis
     Dosage: 400 MILLIGRAM, EV 2 WEEKS(QOW)
     Route: 058
     Dates: start: 20211117, end: 20211117
  2. CERTOLIZUMAB PEGOL [Suspect]
     Active Substance: CERTOLIZUMAB PEGOL
     Indication: Off label use
     Dosage: 200 MILLIGRAM
     Dates: start: 20220206, end: 20220206
  3. CORTISONE [Concomitant]
     Active Substance: CORTISONE
     Indication: Product used for unknown indication

REACTIONS (15)
  - Pneumonia [Recovered/Resolved]
  - Ear infection [Recovered/Resolved]
  - Erythema [Unknown]
  - Feeling hot [Unknown]
  - Oropharyngeal pain [Unknown]
  - Productive cough [Unknown]
  - Ear pain [Unknown]
  - Nasopharyngitis [Not Recovered/Not Resolved]
  - Sinusitis [Not Recovered/Not Resolved]
  - Anosmia [Not Recovered/Not Resolved]
  - Ageusia [Not Recovered/Not Resolved]
  - Secretion discharge [Not Recovered/Not Resolved]
  - Off label use [Unknown]
  - Product use issue [Unknown]
  - SARS-CoV-2 test negative [Unknown]

NARRATIVE: CASE EVENT DATE: 20210101
